FAERS Safety Report 18417038 (Version 1)
Quarter: 2020Q4

REPORT INFORMATION
  Report Type: Spontaneous
  Country: KR (occurrence: KR)
  Receive Date: 20201022
  Receipt Date: 20201022
  Transmission Date: 20210114
  Serious: Yes (Other)
  Sender: FDA-Public Use
  Company Number: KR-GLAXOSMITHKLINE-KR2020GSK210217

PATIENT
  Age: 51 Year
  Sex: Male

DRUGS (7)
  1. VALSARTAN. [Concomitant]
     Active Substance: VALSARTAN
     Indication: CARDIAC FAILURE
     Dosage: 40 MG
  2. SPIRONOLACTONE. [Concomitant]
     Active Substance: SPIRONOLACTONE
     Indication: CARDIAC FAILURE
     Dosage: 12.5 MG
  3. FUROSEMIDE. [Interacting]
     Active Substance: FUROSEMIDE
     Indication: CARDIAC FAILURE
     Dosage: 20 MG
     Route: 048
  4. IVABRADINE [Interacting]
     Active Substance: IVABRADINE
     Indication: TACHYCARDIA
     Dosage: 5 MG
  5. CARVEDILOL. [Suspect]
     Active Substance: CARVEDILOL
     Dosage: 12.5 MG
  6. CARVEDILOL. [Interacting]
     Active Substance: CARVEDILOL
     Indication: CARDIAC FAILURE
     Dosage: 6.25 MG
  7. IVABRADINE [Interacting]
     Active Substance: IVABRADINE
     Dosage: 10 MG

REACTIONS (8)
  - Ventricular tachycardia [Recovering/Resolving]
  - Heart rate increased [Recovering/Resolving]
  - Syncope [Recovering/Resolving]
  - Electrocardiogram QT prolonged [Recovering/Resolving]
  - Potentiating drug interaction [Unknown]
  - Ventricular extrasystoles [Recovering/Resolving]
  - Torsade de pointes [Recovering/Resolving]
  - Sinus bradycardia [Recovering/Resolving]
